FAERS Safety Report 23063687 (Version 1)
Quarter: 2023Q4

REPORT INFORMATION
  Report Type: Spontaneous
  Country: CA (occurrence: None)
  Receive Date: 20231013
  Receipt Date: 20231013
  Transmission Date: 20240110
  Serious: Yes (Other)
  Sender: FDA-Public Use
  Company Number: 2023A228496

PATIENT

DRUGS (3)
  1. IMFINZI [Suspect]
     Active Substance: DURVALUMAB
     Indication: Product used for unknown indication
     Route: 042
  2. TAGRISSO [Suspect]
     Active Substance: OSIMERTINIB
     Indication: Product used for unknown indication
     Route: 048
  3. TRASTUZUMAB [Suspect]
     Active Substance: TRASTUZUMAB
     Indication: Product used for unknown indication
     Route: 042

REACTIONS (8)
  - Cerebrovascular accident [Unknown]
  - Disease progression [Unknown]
  - Hepatitis B [Unknown]
  - Inflammation [Unknown]
  - Lung neoplasm malignant [Unknown]
  - Neutropenia [Unknown]
  - Oesophageal carcinoma [Unknown]
  - Hepatic enzyme increased [Unknown]
